FAERS Safety Report 15960637 (Version 1)
Quarter: 2019Q1

REPORT INFORMATION
  Report Type: Spontaneous
  Country: US (occurrence: US)
  Receive Date: 20190204
  Receipt Date: 20190204
  Transmission Date: 20190417
  Serious: Yes (Hospitalization)
  Sender: FDA-Public Use
  Company Number: None

PATIENT
  Age: 39 Year
  Sex: Female

DRUGS (1)
  1. LETCO MEDICAL GLUTATHIONE-L-REDUCED POWDER [Suspect]
     Active Substance: GLUTATHIONE
     Indication: NEOPLASM MALIGNANT
     Route: 042
     Dates: start: 20181017, end: 20181017

REACTIONS (6)
  - Pyrexia [None]
  - Pain [None]
  - Headache [None]
  - Wrong technique in product usage process [None]
  - Dizziness [None]
  - Tremor [None]

NARRATIVE: CASE EVENT DATE: 20181017
